FAERS Safety Report 12330284 (Version 1)
Quarter: 2016Q2

REPORT INFORMATION
  Report Type: Spontaneous
  Country: DE (occurrence: DE)
  Receive Date: 20160504
  Receipt Date: 20160504
  Transmission Date: 20160815
  Serious: Yes (Hospitalization)
  Sender: FDA-Public Use
  Company Number: DE-BAUSCH-BL-2016-010034

PATIENT
  Age: 8 Month
  Sex: Female

DRUGS (1)
  1. DERMATOP [Suspect]
     Active Substance: PREDNICARBATE
     Indication: NEURODERMATITIS
     Route: 065

REACTIONS (2)
  - Weight gain poor [Unknown]
  - Growth retardation [Not Recovered/Not Resolved]
